FAERS Safety Report 9253887 (Version 2)
Quarter: 2013Q2

REPORT INFORMATION
  Report Type: Report from Study
  Country: AU (occurrence: AU)
  Receive Date: 20130425
  Receipt Date: 20130430
  Transmission Date: 20140414
  Serious: Yes (Other)
  Sender: FDA-Public Use
  Company Number: AU-ROCHE-1061524

PATIENT
  Sex: Female

DRUGS (9)
  1. ACTEMRA [Suspect]
     Indication: RHEUMATOID ARTHRITIS
     Route: 065
     Dates: start: 20110316
  2. METHOTREXATE [Concomitant]
     Route: 048
  3. FOLIC ACID [Concomitant]
     Route: 065
  4. PLAQUENIL [Concomitant]
     Route: 065
  5. ENBREL [Concomitant]
  6. HUMIRA [Concomitant]
  7. ARAVA [Concomitant]
     Route: 065
     Dates: end: 201210
  8. CHOLESTYRAMINE [Concomitant]
     Route: 065
     Dates: end: 201302
  9. PLAQUENIL [Concomitant]
     Route: 065

REACTIONS (3)
  - Hepatic enzyme abnormal [Not Recovered/Not Resolved]
  - Psoriasis [Unknown]
  - Candida infection [Unknown]
